FAERS Safety Report 5274974-3 (Version None)
Quarter: 2007Q1

REPORT INFORMATION
  Report Type: 
  Country: None (occurrence: None)
  Receive Date: 20061207
  Receipt Date: 20060106
  Transmission Date: 20070707
  Serious: Yes (Hospitalization)
  Sender: FDA-Public Use
  Company Number: 2006UW00286

PATIENT
  Age: 82 Year
  Sex: Female
  Weight: 70.3 kg

DRUGS (10)
  1. TOPROL-XL [Suspect]
     Indication: CARDIAC DISORDER
     Dosage: 75 MG DAILY PO
     Route: 048
     Dates: start: 20050101, end: 20051101
  2. TOPROL-XL [Suspect]
     Indication: HYPERTENSION
     Dosage: 75 MG DAILY PO
     Route: 048
     Dates: start: 20050101, end: 20051101
  3. TOPROL-XL [Suspect]
     Indication: CARDIAC DISORDER
     Dosage: 25 MG BID PO
     Route: 048
     Dates: start: 20051101
  4. TOPROL-XL [Suspect]
     Indication: HYPERTENSION
     Dosage: 25 MG BID PO
     Route: 048
     Dates: start: 20051101
  5. ATACAND [Concomitant]
  6. ESTRACE [Concomitant]
  7. SYNTHROID [Concomitant]
  8. FUROSEMIDE [Concomitant]
  9. ZAROXOLYN [Concomitant]
  10. ALLOPURINOL [Concomitant]

REACTIONS (1)
  - DYSPNOEA [None]
